FAERS Safety Report 5491637-X (Version None)
Quarter: 2007Q4

REPORT INFORMATION
  Report Type: 
  Country: None (occurrence: None)
  Receive Date: 20071018
  Receipt Date: 20071018
  Transmission Date: 20080405
  Serious: Yes (Life-Threatening, Hospitalization)
  Sender: FDA-Public Use
  Company Number: None

PATIENT
  Age: 68 Year
  Sex: Male

DRUGS (2)
  1. LUCENTIS [Suspect]
     Indication: CHOROIDAL NEOVASCULARISATION
     Dosage: 0.5MG/0.05ML  INTRAOCULAR
     Route: 031
     Dates: start: 20070806, end: 20070806
  2. LUCENTIS [Suspect]
     Indication: MACULAR DEGENERATION
     Dosage: 0.5MG/0.05ML  INTRAOCULAR
     Route: 031
     Dates: start: 20070806, end: 20070806

REACTIONS (3)
  - DEEP VEIN THROMBOSIS [None]
  - UNEVALUABLE EVENT [None]
  - VENOUS THROMBOSIS LIMB [None]
